FAERS Safety Report 8525555-7 (Version None)
Quarter: 2012Q3

REPORT INFORMATION
  Report Type: 
  Country: None (occurrence: None)
  Receive Date: 20120720
  Receipt Date: 20120711
  Transmission Date: 20120928
  Serious: Yes (Other)
  Sender: FDA-Public Use
  Company Number: US-ASTRAZENECA-2011SE38444

PATIENT
  Age: 60 Year
  Sex: Female
  Weight: 90.7 kg

DRUGS (21)
  1. LEVOTHYROXINE SODIUM [Concomitant]
     Route: 048
  2. ASPIRIN [Concomitant]
     Route: 048
  3. IBUPROFEN [Concomitant]
     Route: 048
  4. PRINZIDE [Concomitant]
     Dosage: 20 MG- 12.5 MG AS DIRECTED
     Route: 048
  5. NORVASC [Suspect]
     Route: 065
  6. PLAVIX [Concomitant]
     Route: 048
  7. ASPIRIN [Concomitant]
     Route: 048
  8. ATACAND [Suspect]
     Route: 048
     Dates: start: 20110601
  9. ATACAND HCT [Suspect]
     Route: 048
  10. TOPROL-XL [Suspect]
     Indication: HYPERTENSION
     Route: 048
  11. ALEVE [Concomitant]
     Route: 048
  12. LISINOPRIL AND HYDROCHLOROTHIAZIDE [Concomitant]
     Dosage: 10/12.5 MG QD
     Route: 048
  13. CLONAZEPAM [Concomitant]
     Route: 048
  14. KLONOPIN [Concomitant]
     Route: 048
  15. IBUPROFEN [Concomitant]
     Dosage: PRN
     Route: 048
  16. ATACAND [Suspect]
     Indication: HYPERTENSION
     Route: 048
  17. LISINOPRIL [Suspect]
     Route: 048
  18. METOPROLOL TARTRATE [Concomitant]
     Route: 048
  19. SIMVASTATIN [Concomitant]
     Route: 048
  20. CRESTOR [Suspect]
     Indication: BLOOD CHOLESTEROL ABNORMAL
     Route: 048
     Dates: start: 20110101
  21. TOPROL-XL [Suspect]
     Route: 048

REACTIONS (17)
  - HYPOTHYROIDISM [None]
  - CHONDROPATHY [None]
  - CEREBROVASCULAR ACCIDENT [None]
  - BLOOD PRESSURE DECREASED [None]
  - PERIPHERAL VASCULAR DISORDER [None]
  - MYALGIA [None]
  - TRANSIENT ISCHAEMIC ATTACK [None]
  - DRUG HYPERSENSITIVITY [None]
  - NASOPHARYNGITIS [None]
  - MEMORY IMPAIRMENT [None]
  - ADVERSE EVENT [None]
  - METABOLIC SYNDROME [None]
  - ESSENTIAL HYPERTENSION [None]
  - OSTEOARTHRITIS [None]
  - BONE DISORDER [None]
  - CAROTID ARTERY STENOSIS [None]
  - MUSCULAR WEAKNESS [None]
